FAERS Safety Report 8534272-9 (Version None)
Quarter: 2012Q3

REPORT INFORMATION
  Report Type: 
  Country: None (occurrence: None)
  Receive Date: 20120711
  Receipt Date: 20110825
  Transmission Date: 20120928
  Serious: Yes (Other)
  Sender: FDA-Public Use
  Company Number: 2011-07771

PATIENT
  Age: 60 Year
  Sex: Female

DRUGS (2)
  1. IMOVAX RABIES I.D. [Suspect]
     Indication: RABIES IMMUNISATION
  2. IMOGAM RABIES-HT (PASTEURIZED HUMAN RABIES IMMUNCGLOBULIN) [Suspect]
     Indication: RABIES IMMUNISATION

REACTIONS (2)
  - DIZZINESS [None]
  - PARAESTHESIA [None]
